FAERS Safety Report 5473246-1 (Version None)
Quarter: 2007Q4

REPORT INFORMATION
  Report Type: 
  Country: None (occurrence: None)
  Receive Date: 20071001
  Receipt Date: 20070919
  Transmission Date: 20080405
  Serious: Yes (Other)
  Sender: FDA-Public Use
  Company Number: HQWYE586416AUG07

PATIENT
  Sex: Female
  Weight: 46.31 kg

DRUGS (2)
  1. EFFEXOR XR [Suspect]
     Indication: DEPRESSION
     Route: 048
     Dates: start: 20041001, end: 20070701
  2. XANAX [Concomitant]
     Dosage: 0.5 MG TID PRN
     Route: 048
     Dates: start: 20060731

REACTIONS (17)
  - AGGRESSION [None]
  - ANTISOCIAL BEHAVIOUR [None]
  - BLINDNESS [None]
  - CHEST PAIN [None]
  - DIARRHOEA [None]
  - DRUG INEFFECTIVE [None]
  - EATING DISORDER [None]
  - EYE DISORDER [None]
  - HALLUCINATION, VISUAL [None]
  - INFERIORITY COMPLEX [None]
  - INSOMNIA [None]
  - SLEEP TERROR [None]
  - SUICIDAL IDEATION [None]
  - SWELLING [None]
  - TINNITUS [None]
  - UNEVALUABLE EVENT [None]
  - WEIGHT DECREASED [None]
